FAERS Safety Report 11026691 (Version 1)
Quarter: 2015Q2

REPORT INFORMATION
  Report Type: Report from Study
  Country: FR (occurrence: FR)
  Receive Date: 20150414
  Receipt Date: 20150414
  Transmission Date: 20150821
  Serious: Yes (Other)
  Sender: FDA-Public Use
  Company Number: FR-ASTELLAS-2015US011732

PATIENT

DRUGS (2)
  1. ERLOTINIB [Suspect]
     Active Substance: ERLOTINIB
     Indication: NON-SMALL CELL LUNG CANCER
     Dosage: 100-150 MG, ONCE DAILY
     Route: 048
  2. PILARALISIB [Suspect]
     Active Substance: PILARALISIB
     Indication: NON-SMALL CELL LUNG CANCER
     Dosage: 50-600 MG, CYCLIC (21 DAYS PER 28 DAY CYCLE)
     Route: 048

REACTIONS (4)
  - Diarrhoea [Unknown]
  - Drug reaction with eosinophilia and systemic symptoms [Unknown]
  - Amylase increased [Unknown]
  - Intracardiac thrombus [Unknown]
